FAERS Safety Report 11821410 (Version 3)
Quarter: 2016Q1

REPORT INFORMATION
  Report Type: Spontaneous
  Country: US (occurrence: US)
  Receive Date: 20151210
  Receipt Date: 20160219
  Transmission Date: 20160525
  Serious: No
  Sender: FDA-Public Use
  Company Number: US-PFIZER INC-2015384718

PATIENT
  Age: 88 Year
  Sex: Female

DRUGS (2)
  1. TESSALON [Suspect]
     Active Substance: BENZONATATE
     Indication: COUGH
     Dosage: 100 MG, 2X/DAY
  2. CEFDINIR. [Suspect]
     Active Substance: CEFDINIR
     Indication: COUGH
     Dosage: 300 MG, 2X/DAY

REACTIONS (3)
  - Asthenia [Recovering/Resolving]
  - Drug effect incomplete [Recovering/Resolving]
  - Nasopharyngitis [Unknown]
